FAERS Safety Report 8489792-2 (Version None)
Quarter: 2012Q3

REPORT INFORMATION
  Report Type: 
  Country: None (occurrence: None)
  Receive Date: 20120705
  Receipt Date: 20120627
  Transmission Date: 20120928
  Serious: Yes (Hospitalization)
  Sender: FDA-Public Use
  Company Number: US-ELI_LILLY_AND_COMPANY-US201112004300

PATIENT

DRUGS (6)
  1. PROVENTIL                          /00139502/ [Concomitant]
     Dosage: UNK, UNKNOWN
     Route: 065
  2. HUMATROPE [Suspect]
     Dosage: 0.9 MG, UNKNOWN
     Route: 058
  3. SYNTHROID [Concomitant]
     Dosage: UNK, UNKNOWN
     Route: 065
  4. FLOVENT [Concomitant]
     Dosage: UNK, UNKNOWN
     Route: 065
  5. PRILOSEC [Concomitant]
     Dosage: UNK, UNKNOWN
     Route: 065
  6. MIRALAX [Concomitant]
     Dosage: UNK, UNKNOWN
     Route: 065

REACTIONS (2)
  - PNEUMONIA STREPTOCOCCAL [None]
  - ADENOIDECTOMY [None]
